FAERS Safety Report 4304018-9 (Version None)
Quarter: 2004Q1

REPORT INFORMATION
  Report Type: 
  Country: None (occurrence: None)
  Receive Date: 20040223
  Receipt Date: 20040121
  Transmission Date: 20041129
  Serious: No
  Sender: FDA-Public Use
  Company Number: PHEH2004US01064

PATIENT
  Age: 40 Year
  Sex: Female

DRUGS (3)
  1. ZELNORM [Suspect]
     Indication: GASTRIC DISORDER
     Dosage: 6 MG, QD, ORAL
     Route: 048
     Dates: start: 20031201
  2. ZYRTEC [Concomitant]
  3. CLONOPIN [Concomitant]

REACTIONS (1)
  - ALOPECIA [None]
